FAERS Safety Report 17888720 (Version 1)
Quarter: 2020Q2

REPORT INFORMATION
  Report Type: Spontaneous
  Country: US (occurrence: US)
  Receive Date: 20200611
  Receipt Date: 20200611
  Transmission Date: 20200714
  Serious: Yes (Other)
  Sender: FDA-Public Use
  Company Number: None

PATIENT
  Sex: Female

DRUGS (1)
  1. TOBRAMYCIN (56AMPS/28DAY) [Suspect]
     Active Substance: TOBRAMYCIN
     Route: 055
     Dates: start: 20200527, end: 20200605

REACTIONS (3)
  - Chest discomfort [None]
  - Wheezing [None]
  - Therapy interrupted [None]
